FAERS Safety Report 13014671 (Version 1)
Quarter: 2016Q4

REPORT INFORMATION
  Report Type: Spontaneous
  Country: JP (occurrence: JP)
  Receive Date: 20161209
  Receipt Date: 20161209
  Transmission Date: 20170207
  Serious: Yes (Death, Other)
  Sender: FDA-Public Use
  Company Number: JP-MYLANLABS-2016M1053901

PATIENT

DRUGS (3)
  1. THROMBOMODULIN ALFA [Concomitant]
     Active Substance: THROMBOMODULIN ALFA
     Indication: DISSEMINATED INTRAVASCULAR COAGULATION
     Route: 065
  2. IFOSFAMIDE. [Suspect]
     Active Substance: IFOSFAMIDE
     Indication: SOFT TISSUE SARCOMA
     Dosage: 2.5 G/M2 ON DAY 1 AND 1.9 G/M2 ON DAY 2
     Route: 050
  3. DOXORUBICIN [Concomitant]
     Active Substance: DOXORUBICIN
     Indication: SOFT TISSUE SARCOMA
     Dosage: 19 G/M2 ON DAY 1 AND DAY 2
     Route: 065

REACTIONS (3)
  - Acute respiratory distress syndrome [Fatal]
  - Diabetes insipidus [Unknown]
  - Toxic encephalopathy [Recovering/Resolving]
